FAERS Safety Report 15887759 (Version 1)
Quarter: 2019Q1

REPORT INFORMATION
  Report Type: Spontaneous
  Country: US (occurrence: US)
  Receive Date: 20190130
  Receipt Date: 20190130
  Transmission Date: 20190417
  Serious: No
  Sender: FDA-Public Use
  Company Number: US-GLENMARK PHARMACEUTICALS-2018GMK038473

PATIENT

DRUGS (1)
  1. MUPIROCIN CREAM USP, 2% [Suspect]
     Active Substance: MUPIROCIN
     Indication: NASAL INFLAMMATION
     Dosage: UNK
     Route: 045
     Dates: end: 20181126

REACTIONS (5)
  - Product prescribing error [Unknown]
  - Incorrect route of product administration [Unknown]
  - Wrong technique in product usage process [Unknown]
  - Product use in unapproved indication [Unknown]
  - No adverse event [Unknown]
